FAERS Safety Report 4284840-8 (Version None)
Quarter: 2004Q1

REPORT INFORMATION
  Report Type: 
  Country: None (occurrence: None)
  Receive Date: 20040204
  Receipt Date: 20040127
  Transmission Date: 20041129
  Serious: Yes (Hospitalization, Other)
  Sender: FDA-Public Use
  Company Number: FR-BRISTOL-MYERS SQUIBB COMPANY-12488995

PATIENT
  Age: 76 Year
  Sex: Female

DRUGS (5)
  1. APROVEL [Suspect]
     Route: 048
     Dates: end: 20031113
  2. FLUDEX [Suspect]
     Route: 048
     Dates: start: 20021015, end: 20031113
  3. ZYRTEC [Suspect]
     Route: 048
     Dates: start: 20020915, end: 20031119
  4. DILTIAZEM HCL [Suspect]
     Route: 048
     Dates: end: 20031126
  5. SERETIDE [Concomitant]

REACTIONS (3)
  - HYPERGAMMAGLOBULINAEMIA [None]
  - LEUKOCYTOCLASTIC VASCULITIS [None]
  - URINARY TRACT INFECTION [None]
